FAERS Safety Report 4819471-1 (Version None)
Quarter: 2005Q4

REPORT INFORMATION
  Report Type: 
  Country: None (occurrence: None)
  Receive Date: 20051031
  Receipt Date: 20050711
  Transmission Date: 20060501
  Serious: No
  Sender: FDA-Public Use
  Company Number: 2005PV000372

PATIENT
  Sex: Female

DRUGS (3)
  1. SYMLIN [Suspect]
     Indication: DIABETES MELLITUS
     Dosage: 45 MCG; SC; SEE IMAGE
     Route: 058
     Dates: start: 20050101, end: 20050626
  2. SYMLIN [Suspect]
     Indication: DIABETES MELLITUS
     Dosage: 45 MCG; SC; SEE IMAGE
     Route: 058
     Dates: start: 20050601
  3. INSULIN [Concomitant]

REACTIONS (2)
  - INJECTION SITE IRRITATION [None]
  - NAUSEA [None]
